FAERS Safety Report 7963815-9 (Version None)
Quarter: 2011Q4

REPORT INFORMATION
  Report Type: 
  Country: None (occurrence: None)
  Receive Date: 20111208
  Receipt Date: 20111130
  Transmission Date: 20120403
  Serious: No
  Sender: FDA-Public Use
  Company Number: US-BAYER-2011-116188

PATIENT
  Age: 71 Year
  Sex: Female
  Weight: 57 kg

DRUGS (7)
  1. SYNTHROID [Concomitant]
  2. VITAMIN D [Concomitant]
  3. ASCORBIC ACID [Concomitant]
  4. FISH OIL [Concomitant]
  5. MULTIVITAMIN [Concomitant]
  6. CALCIUM +VIT D [Concomitant]
  7. ALEVE (CAPLET) [Suspect]
     Indication: BACK PAIN
     Dosage: UNK UNK, QD
     Route: 048
     Dates: start: 20111001

REACTIONS (2)
  - NO ADVERSE EVENT [None]
  - BACK PAIN [None]
